FAERS Safety Report 17413872 (Version 1)
Quarter: 2020Q1

REPORT INFORMATION
  Report Type: Report from Study
  Country: GB (occurrence: GB)
  Receive Date: 20200213
  Receipt Date: 20200213
  Transmission Date: 20200409
  Serious: Yes (Other)
  Sender: FDA-Public Use
  Company Number: GB-JNJFOC-20200208121

PATIENT
  Sex: Female

DRUGS (2)
  1. MERCAPTOPURINE. [Concomitant]
     Active Substance: MERCAPTOPURINE
  2. STELARA [Suspect]
     Active Substance: USTEKINUMAB
     Indication: CROHN^S DISEASE
     Route: 058

REACTIONS (5)
  - Crohn^s disease [Unknown]
  - Sinusitis [Unknown]
  - Neck pain [Unknown]
  - Migraine [Unknown]
  - Oropharyngeal pain [Unknown]
